FAERS Safety Report 15430713 (Version 1)
Quarter: 2018Q3

REPORT INFORMATION
  Report Type: Spontaneous
  Country: US (occurrence: US)
  Receive Date: 20180921
  Receipt Date: 20180921
  Transmission Date: 20181010
  Serious: No
  Sender: FDA-Public Use
  Company Number: None

PATIENT
  Age: 86 Year
  Sex: Male
  Weight: 83 kg

DRUGS (1)
  1. IOHEXOL [Suspect]
     Active Substance: IOHEXOL
     Indication: COMPUTERISED TOMOGRAM
     Dates: start: 20180919, end: 20180919

REACTIONS (3)
  - Urticaria [None]
  - Contrast media reaction [None]
  - Eye swelling [None]

NARRATIVE: CASE EVENT DATE: 20180919
